FAERS Safety Report 13461402 (Version 1)
Quarter: 2017Q2

REPORT INFORMATION
  Report Type: Spontaneous
  Country: US (occurrence: US)
  Receive Date: 20170419
  Receipt Date: 20170419
  Transmission Date: 20170830
  Serious: Yes (Other)
  Sender: FDA-Public Use
  Company Number: None

PATIENT
  Age: 54 Year
  Sex: Female

DRUGS (1)
  1. OXYMETAZOLINE [Suspect]
     Active Substance: OXYMETAZOLINE
     Indication: RHINITIS ALLERGIC
     Route: 045

REACTIONS (2)
  - Epistaxis [None]
  - Nasal ulcer [None]

NARRATIVE: CASE EVENT DATE: 20170418
